FAERS Safety Report 8113034-0 (Version None)
Quarter: 2012Q1

REPORT INFORMATION
  Report Type: 
  Country: None (occurrence: None)
  Receive Date: 20120203
  Receipt Date: 20101026
  Transmission Date: 20120608
  Serious: Yes (Hospitalization)
  Sender: FDA-Public Use
  Company Number: US-GLAXOSMITHKLINE-A0889600A

PATIENT
  Age: 52 Year
  Sex: Male
  Weight: 71.5 kg

DRUGS (20)
  1. DOXYCYCLINE HYCLATE [Concomitant]
     Route: 048
     Dates: start: 20100908
  2. MEGACE [Concomitant]
     Route: 048
     Dates: start: 20101008
  3. COMPAZINE [Concomitant]
     Route: 048
     Dates: start: 20100714
  4. LYRICA [Concomitant]
     Dosage: 150MG THREE TIMES PER DAY
     Route: 048
     Dates: start: 20080101
  5. ERLOTINIB HYDROCHLORIDE [Suspect]
     Indication: NON-SMALL CELL LUNG CANCER
     Route: 048
     Dates: start: 20100910, end: 20101024
  6. AMBIEN [Concomitant]
     Dates: start: 20100924
  7. SANCTURA [Concomitant]
     Dosage: 60MG PER DAY
     Route: 048
     Dates: start: 20090101
  8. SIMVASTATIN [Concomitant]
     Dosage: 40MG PER DAY
     Route: 048
     Dates: start: 20060101
  9. ONDANSETRON HCL [Concomitant]
     Route: 048
     Dates: start: 20100714
  10. CALCIUM CARBONATE + VITAMIN D [Concomitant]
     Route: 048
     Dates: start: 20100714
  11. PLENDIL [Concomitant]
     Dosage: 2.5MG PER DAY
     Route: 048
     Dates: start: 20060101
  12. FOLIC ACID [Concomitant]
     Route: 048
     Dates: start: 20100709
  13. TUSSINEX [Concomitant]
     Route: 048
     Dates: start: 20100915
  14. BENICAR [Concomitant]
     Dosage: 20MG PER DAY
     Route: 048
     Dates: start: 20060101
  15. VOTRIENT [Suspect]
     Indication: NON-SMALL CELL LUNG CANCER
     Route: 048
     Dates: start: 20100910, end: 20101024
  16. LORTAB [Concomitant]
     Route: 048
     Dates: start: 20100927
  17. LUNESTA [Concomitant]
     Route: 048
     Dates: start: 20101018
  18. FLOMAX [Concomitant]
     Dosage: .4MG PER DAY
     Route: 048
     Dates: start: 20080101
  19. MORPHINE SULFATE [Concomitant]
     Dosage: 80MG TWICE PER DAY
     Route: 048
     Dates: start: 20100702
  20. ZOMETA [Concomitant]
     Dosage: 4MG VARIABLE DOSE
     Route: 042
     Dates: start: 20100727, end: 20101022

REACTIONS (4)
  - DYSPNOEA EXERTIONAL [None]
  - PULMONARY EMBOLISM [None]
  - PNEUMONIA [None]
  - DISEASE PROGRESSION [None]
